FAERS Safety Report 8998451 (Version 1)
Quarter: 2013Q1

REPORT INFORMATION
  Report Type: Spontaneous
  Country: AU (occurrence: AU)
  Receive Date: 20130103
  Receipt Date: 20130103
  Transmission Date: 20140127
  Serious: Yes (Death)
  Sender: FDA-Public Use
  Company Number: AU-ROCHE-1175984

PATIENT
  Age: 89 Year
  Sex: Female
  Weight: 58 kg

DRUGS (8)
  1. ACTILYSE [Suspect]
     Indication: HEMIPLEGIA
     Route: 065
     Dates: start: 20081231
  2. ACTILYSE [Suspect]
     Indication: APHASIA
  3. ACETYLSALICYLIC ACID [Concomitant]
  4. FRUSEMIDE [Concomitant]
  5. IRBESARTAN [Concomitant]
  6. METOPROLOL [Concomitant]
  7. SPAN-K [Concomitant]
  8. SIMVASTATIN [Concomitant]

REACTIONS (3)
  - Subdural haemorrhage [Fatal]
  - Intraventricular haemorrhage [Fatal]
  - Death [Fatal]
